FAERS Safety Report 8282545 (Version 5)
Quarter: 2014Q2

REPORT INFORMATION
  Report Type: Spontaneous
  Country: US (occurrence: US)
  Receive Date: 20111209
  Receipt Date: 20140502
  Transmission Date: 20141212
  Serious: Yes (Death, Hospitalization, Other)
  Sender: FDA-Public Use
  Company Number: US-B.I. PHARMACEUTICALS,INC./RIDGEFIELD-2011-BP-27461BP

PATIENT
  Age: 84 Year
  Sex: Male

DRUGS (10)
  1. PRADAXA [Suspect]
     Indication: ATRIAL FIBRILLATION
     Dosage: 300 MG
     Route: 048
     Dates: start: 20111108, end: 20111127
  2. PROZAC [Concomitant]
     Dosage: 20 MG
     Route: 048
  3. PROCRIT [Concomitant]
     Route: 065
  4. PROVIGIL [Concomitant]
     Route: 065
  5. VICODIN [Concomitant]
     Route: 065
  6. LASIX [Concomitant]
     Route: 048
  7. POTASSIUM [Concomitant]
     Route: 065
  8. GLUCOTROL [Concomitant]
     Route: 065
  9. CRESTOR [Concomitant]
     Route: 065
  10. LEVOXYL [Concomitant]
     Route: 065

REACTIONS (7)
  - Gastric haemorrhage [Fatal]
  - Anaemia [Unknown]
  - Leukocytosis [Unknown]
  - Renal failure acute [Unknown]
  - Hypotension [Unknown]
  - Coagulopathy [Unknown]
  - Cardiac failure acute [Unknown]
